FAERS Safety Report 14755269 (Version 1)
Quarter: 2018Q2

REPORT INFORMATION
  Report Type: Spontaneous
  Country: ES (occurrence: ES)
  Receive Date: 20180413
  Receipt Date: 20180413
  Transmission Date: 20180711
  Serious: Yes (Life-Threatening, Hospitalization)
  Sender: FDA-Public Use
  Company Number: ES-HETERO CORPORATE-HET2018ES00318

PATIENT
  Age: 56 Year
  Sex: Male

DRUGS (1)
  1. SILDENAFIL. [Suspect]
     Active Substance: SILDENAFIL
     Indication: PRODUCT USED FOR UNKNOWN INDICATION
     Route: 065

REACTIONS (8)
  - Cardiac arrest [Recovered/Resolved]
  - Respiratory distress [Recovered/Resolved]
  - Pupils unequal [None]
  - Bradycardia [Recovered/Resolved]
  - Prescription drug used without a prescription [Recovering/Resolving]
  - Paraesthesia [None]
  - Spinal cord infarction [Recovered/Resolved with Sequelae]
  - Spinal cord disorder [Recovered/Resolved with Sequelae]
